FAERS Safety Report 22615944 (Version 1)
Quarter: 2023Q2

REPORT INFORMATION
  Report Type: Spontaneous
  Country: US (occurrence: US)
  Receive Date: 20230619
  Receipt Date: 20230619
  Transmission Date: 20230722
  Serious: No
  Sender: FDA-Public Use
  Company Number: ae006US23

PATIENT
  Age: 58 Year
  Sex: Female

DRUGS (8)
  1. ASCLERA [Suspect]
     Active Substance: POLIDOCANOL
     Indication: Spider vein
     Dosage: 4 VIALS
     Dates: start: 20230503, end: 20230503
  2. ASCLERA [Suspect]
     Active Substance: POLIDOCANOL
     Indication: Spider vein
  3. LEVOTHYROXINE [Concomitant]
     Active Substance: LEVOTHYROXINE
     Indication: Product used for unknown indication
  4. SILVADENE [Concomitant]
     Active Substance: SILVER SULFADIAZINE
     Route: 061
  5. AMOXICILLIN [Concomitant]
     Active Substance: AMOXICILLIN
     Route: 048
  6. IODINE [Concomitant]
     Active Substance: IODINE
  7. Red light [Concomitant]
     Dates: start: 20230614
  8. Coban wrap [Concomitant]

REACTIONS (3)
  - Wound [Recovering/Resolving]
  - Oedema [Recovering/Resolving]
  - Erythema [Recovering/Resolving]
